FAERS Safety Report 15253116 (Version 3)
Quarter: 2019Q1

REPORT INFORMATION
  Report Type: Spontaneous
  Country: US (occurrence: US)
  Receive Date: 20180807
  Receipt Date: 20190207
  Transmission Date: 20190417
  Serious: No
  Sender: FDA-Public Use
  Company Number: US-RADIUS HEALTH INC.-2018US001246

PATIENT
  Age: 54 Year
  Sex: Female

DRUGS (1)
  1. TYMLOS [Suspect]
     Active Substance: ABALOPARATIDE
     Indication: OSTEOPOROSIS POSTMENOPAUSAL
     Dosage: 80 MCG, EVERY NIGHT
     Route: 058
     Dates: start: 201802

REACTIONS (4)
  - Drug ineffective [Unknown]
  - Bone density decreased [Unknown]
  - Product storage error [Unknown]
  - Serum procollagen type I N-terminal propeptide decreased [Unknown]

NARRATIVE: CASE EVENT DATE: 20180721
